FAERS Safety Report 6214853-8 (Version None)
Quarter: 2009Q2

REPORT INFORMATION
  Report Type: 
  Country: None (occurrence: None)
  Receive Date: 20090601
  Receipt Date: 20090107
  Transmission Date: 20091009
  Serious: Yes (Other)
  Sender: FDA-Public Use
  Company Number: 276965

PATIENT
  Age: 57 Year
  Sex: Female

DRUGS (8)
  1. ACTIVELLA [Suspect]
     Indication: MENOPAUSAL SYMPTOMS
     Dosage: ORAL
     Route: 048
     Dates: start: 20010817, end: 20020812
  2. ESTRACE [Suspect]
     Indication: MENOPAUSAL SYMPTOMS
     Dosage: ORAL
     Route: 048
     Dates: start: 19920101, end: 20021001
  3. PREMPRO [Suspect]
     Indication: MENOPAUSAL SYMPTOMS
     Dosage: ORAL
     Route: 048
     Dates: start: 19960404, end: 20000102
  4. ORTHO-PREFEST(ESTRADIIOL, NORGESTIMATE) [Suspect]
     Indication: MENOPAUSAL SYMPTOMS
     Dosage: ORAL
     Route: 048
     Dates: start: 20000502, end: 20010417
  5. MEDROXYPROGESTERONE [Suspect]
     Indication: MENOPAUSAL SYMPTOMS
     Dosage: ORAL
     Route: 048
     Dates: start: 20001012, end: 20010413
  6. NORVASC /00972401/ (AMLODIPINE) [Concomitant]
  7. ZOLOFT [Concomitant]
  8. AMBIEN [Concomitant]

REACTIONS (1)
  - BREAST CANCER [None]
